FAERS Safety Report 5057258-8 (Version None)
Quarter: 2006Q3

REPORT INFORMATION
  Report Type: 
  Country: None (occurrence: None)
  Receive Date: 20060721
  Receipt Date: 20050707
  Transmission Date: 20061208
  Serious: Yes (Other)
  Sender: FDA-Public Use
  Company Number: US-GLAXOSMITHKLINE-A0565344A

PATIENT
  Age: 49 Year
  Sex: Male

DRUGS (3)
  1. AVANDIA [Suspect]
     Dosage: 4MG PER DAY
     Route: 048
     Dates: start: 20050625
  2. METFORMIN [Concomitant]
  3. AMARYL [Concomitant]

REACTIONS (4)
  - BACK PAIN [None]
  - FLUSHING [None]
  - HYPERHIDROSIS [None]
  - HYPOGLYCAEMIA [None]
